FAERS Safety Report 8795732 (Version 2)
Quarter: 2012Q4

REPORT INFORMATION
  Report Type: 
  Country: US (occurrence: US)
  Receive Date: 20120919
  Receipt Date: 20121030
  Transmission Date: 20130627
  Serious: Yes (Disabling)
  Sender: FDA-Public Use
  Company Number: US-B.I. PHARMACEUTICALS,INC./RIDGEFIELD-2012-BP-22776BP

PATIENT
  Age: 78 None
  Sex: Male

DRUGS (1)
  1. IPRATROPIUM BROMIDE [Suspect]
     Route: 055

REACTIONS (7)
  - Blindness [Unknown]
  - Cataract [Unknown]
  - Eye infection [Unknown]
  - Glaucoma [Unknown]
  - Visual impairment [Unknown]
  - Dyspnoea [Unknown]
  - Product quality issue [Unknown]
